FAERS Safety Report 10787586 (Version 1)
Quarter: 2015Q1

REPORT INFORMATION
  Report Type: Report from Study
  Country: US (occurrence: US)
  Receive Date: 20150212
  Receipt Date: 20150212
  Transmission Date: 20150721
  Serious: Yes (Other)
  Sender: FDA-Public Use
  Company Number: US-ACCORD-028552

PATIENT
  Age: 67 Year
  Sex: Male

DRUGS (2)
  1. BEXAROTENE [Concomitant]
     Active Substance: BEXAROTENE
     Route: 048
  2. METHOTREXATE [Suspect]
     Active Substance: METHOTREXATE
     Indication: MYCOSIS FUNGOIDES

REACTIONS (1)
  - Vitiligo [Unknown]
